FAERS Safety Report 7884434-9 (Version None)
Quarter: 2011Q4

REPORT INFORMATION
  Report Type: 
  Country: None (occurrence: None)
  Receive Date: 20111102
  Receipt Date: 20110706
  Transmission Date: 20120403
  Serious: No
  Sender: FDA-Public Use
  Company Number: US-ASTRAZENECA-2011SE33436

PATIENT
  Age: 78 Year
  Sex: Male

DRUGS (8)
  1. FLOMAX [Concomitant]
     Indication: BENIGN PROSTATIC HYPERPLASIA
  2. VANDETANIB [Suspect]
     Route: 048
     Dates: start: 20110601
  3. WELLBUTRIN [Concomitant]
     Indication: DEPRESSION
  4. HYDROCHLORTHIAZIDE [Concomitant]
     Indication: HYPERTENSION
  5. LISINOPRIL [Concomitant]
     Indication: HYPERTENSION
  6. ZOCOR [Concomitant]
     Indication: HYPERCHOLESTEROLAEMIA
  7. VANDETANIB [Suspect]
     Indication: THYROID CANCER
     Route: 048
     Dates: start: 20110512
  8. NEXIUM [Concomitant]
     Indication: GASTROOESOPHAGEAL REFLUX DISEASE

REACTIONS (6)
  - GENITAL RASH [None]
  - FALL [None]
  - RASH [None]
  - DIARRHOEA [None]
  - DERMATITIS ACNEIFORM [None]
  - BLISTER [None]
